FAERS Safety Report 9668101 (Version 2)
Quarter: 2014Q1

REPORT INFORMATION
  Report Type: Spontaneous
  Country: US (occurrence: US)
  Receive Date: 20131104
  Receipt Date: 20140207
  Transmission Date: 20141002
  Serious: No
  Sender: FDA-Public Use
  Company Number: US-009507513-1311USA000427

PATIENT
  Age: 80 Year
  Sex: Female
  Weight: 95.69 kg

DRUGS (5)
  1. OXYTROL FOR WOMEN [Suspect]
     Indication: POLLAKIURIA
     Dosage: 1 DF, ONCE
     Route: 062
     Dates: start: 20131003, end: 20131004
  2. LAMOTRIGINE [Concomitant]
     Indication: TRIGEMINAL NEURALGIA
     Dosage: UNK, UNKNOWN
  3. GABAPENTIN [Concomitant]
     Indication: TRIGEMINAL NEURALGIA
     Dosage: UNK, UNKNOWN
  4. NEXIUM [Concomitant]
     Indication: BARRETT^S OESOPHAGUS
     Dosage: 40 MG, UNKNOWN
  5. SYNTHROID [Concomitant]
     Indication: HYPOTHYROIDISM
     Dosage: 114 MG, UNKNOWN

REACTIONS (2)
  - Nightmare [Recovered/Resolved]
  - Insomnia [Recovered/Resolved]
